FAERS Safety Report 5613328-4 (Version None)
Quarter: 2008Q1

REPORT INFORMATION
  Report Type: 
  Country: None (occurrence: None)
  Receive Date: 20080129
  Receipt Date: 20080121
  Transmission Date: 20080703
  Serious: Yes (Hospitalization)
  Sender: FDA-Public Use
  Company Number: 2007SP024980

PATIENT
  Age: 76 Year
  Sex: Male

DRUGS (6)
  1. DESLORATADINE [Suspect]
     Indication: ECZEMA
     Dosage: 1 DF; QD; PO
     Route: 048
     Dates: start: 20071121, end: 20071123
  2. TICLOPIDINE HCL [Concomitant]
  3. HYDROCHLORIDE [Concomitant]
  4. SELOKEN [Concomitant]
  5. TORVAST [Concomitant]
  6. OMNIC [Concomitant]

REACTIONS (3)
  - AGITATION [None]
  - CIRCADIAN RHYTHM SLEEP DISORDER [None]
  - HALLUCINATION, VISUAL [None]
